FAERS Safety Report 6608367 (Version 2)
Quarter: 2012Q4

REPORT INFORMATION
  Report Type: 
  Country: US (occurrence: US)
  Receive Date: 20080408
  Receipt Date: 20121012
  Transmission Date: 20130627
  Serious: Yes (Hospitalization)
  Sender: FDA-Public Use
  Company Number: US-BAYER-US-2007-002611

PATIENT
  Age: 26 Year
  Sex: Female
  Weight: 79.4 kg

DRUGS (2)
  1. YASMIN [Suspect]
     Dosage: 1 tab(s), 1x/day [Daily dose: 1 tab(s)] [Total dose: 166 tab(s)]
     Route: 048
     Dates: start: 20060810, end: 20070123
  2. CYMBALTA [Concomitant]
     Indication: DEPRESSION
     Dosage: Daily dose 80 mg
     Route: 048
     Dates: start: 20070115

REACTIONS (2)
  - Pulmonary embolism [Recovered/Resolved with Sequelae]
  - Deep vein thrombosis [Recovered/Resolved with Sequelae]
